FAERS Safety Report 7109322-7 (Version None)
Quarter: 2010Q4

REPORT INFORMATION
  Report Type: 
  Country: None (occurrence: None)
  Receive Date: 20101118
  Receipt Date: 20101110
  Transmission Date: 20110411
  Serious: Yes (Hospitalization)
  Sender: FDA-Public Use
  Company Number: US-BIOGENIDEC-2010BI020235

PATIENT
  Age: 49 Year
  Sex: Female

DRUGS (1)
  1. TYSABRI [Suspect]
     Indication: MULTIPLE SCLEROSIS
     Route: 042
     Dates: start: 20100407

REACTIONS (7)
  - FATIGUE [None]
  - HYPOAESTHESIA [None]
  - IMPAIRED HEALING [None]
  - MOBILITY DECREASED [None]
  - NECK PAIN [None]
  - SPINAL COLUMN STENOSIS [None]
  - SPINAL OPERATION [None]
